FAERS Safety Report 25538325 (Version 1)
Quarter: 2025Q3

REPORT INFORMATION
  Report Type: Spontaneous
  Country: US (occurrence: None)
  Receive Date: 20250709
  Receipt Date: 20250709
  Transmission Date: 20251021
  Serious: Yes (Disabling)
  Sender: FDA-CTU
  Company Number: None

PATIENT
  Age: 65 Year
  Sex: Female
  Weight: 51.75 kg

DRUGS (8)
  1. LUMIGAN [Suspect]
     Active Substance: BIMATOPROST
     Indication: Glaucoma
     Dosage: 1 DROP(S) AT BEDTIME OPHTHALMIC
     Route: 047
     Dates: start: 20250520, end: 20250521
  2. Women over 50 multi vitamins [Concomitant]
  3. CALCIUM [Concomitant]
     Active Substance: CALCIUM
  4. MAGNESIUM [Concomitant]
     Active Substance: MAGNESIUM
  5. ZINC [Concomitant]
     Active Substance: ZINC
  6. PROBIOTICS NOS [Concomitant]
     Active Substance: PROBIOTICS NOS
  7. Nutrafol for menopausal women [Concomitant]
  8. DORZOLAMIDE WITH TIMOLOL [Concomitant]

REACTIONS (5)
  - Inability to afford medication [None]
  - Product substitution issue [None]
  - Hypersensitivity [None]
  - Drug intolerance [None]
  - Infection [None]

NARRATIVE: CASE EVENT DATE: 20250520
